FAERS Safety Report 25429183 (Version 1)
Quarter: 2025Q2

REPORT INFORMATION
  Report Type: Spontaneous
  Country: US (occurrence: None)
  Receive Date: 20250611
  Receipt Date: 20250611
  Transmission Date: 20250717
  Serious: Yes (Hospitalization)
  Sender: FDA-CTU
  Company Number: None

PATIENT
  Age: 80 Year
  Sex: Female
  Weight: 83 kg

DRUGS (1)
  1. RITUXAN [Suspect]
     Active Substance: RITUXIMAB
     Indication: Glomerulonephritis membranous
     Dates: start: 20250523, end: 20250523

REACTIONS (6)
  - Infusion related reaction [None]
  - Throat tightness [None]
  - Throat irritation [None]
  - Urticaria [None]
  - Dysphagia [None]
  - Oropharyngeal pain [None]

NARRATIVE: CASE EVENT DATE: 20250523
